FAERS Safety Report 16986179 (Version 1)
Quarter: 2019Q4

REPORT INFORMATION
  Report Type: Spontaneous
  Country: FR (occurrence: FR)
  Receive Date: 20191103
  Receipt Date: 20191103
  Transmission Date: 20200122
  Serious: Yes (Hospitalization)
  Sender: FDA-Public Use
  Company Number: FR-BAXTER-2019BAX021615

PATIENT
  Age: 19 Year
  Sex: Female
  Weight: 45 kg

DRUGS (3)
  1. METRONIDAZOLE BAXTER 0,5 POUR CENT, SOLUTION INJECTABLE EN POCHE [Suspect]
     Active Substance: METRONIDAZOLE
     Indication: POSTOPERATIVE ABSCESS
     Route: 042
     Dates: start: 20191010, end: 20191015
  2. GENTAMICIN. [Suspect]
     Active Substance: GENTAMICIN
     Indication: POSTOPERATIVE ABSCESS
     Route: 042
     Dates: start: 20191010, end: 20191015
  3. CEFTRIAXONE BASE [Suspect]
     Active Substance: CEFTRIAXONE
     Indication: POSTOPERATIVE ABSCESS
     Route: 042
     Dates: start: 20191010, end: 20191015

REACTIONS (1)
  - Agranulocytosis [Recovering/Resolving]

NARRATIVE: CASE EVENT DATE: 20191015
